FAERS Safety Report 19405177 (Version 1)
Quarter: 2021Q2

REPORT INFORMATION
  Report Type: Spontaneous
  Country: US (occurrence: US)
  Receive Date: 20210611
  Receipt Date: 20210611
  Transmission Date: 20210717
  Serious: Yes (Life-Threatening, Other)
  Sender: FDA-Public Use
  Company Number: None

PATIENT
  Age: 65 Year
  Sex: Male
  Weight: 63 kg

DRUGS (23)
  1. PREGABALIN. [Suspect]
     Active Substance: PREGABALIN
     Indication: NEUROPATHY PERIPHERAL
     Route: 048
     Dates: start: 20200901, end: 20201001
  2. HOLY BASIL [Concomitant]
  3. ALPHA LIPOIC ACID [Concomitant]
     Active Substance: .ALPHA.-LIPOIC ACID
  4. BOSWELLIA [Concomitant]
     Active Substance: DIETARY SUPPLEMENT\HERBALS
  5. ESSENTIAL AMINO ACID BLEND [Concomitant]
  6. MULTIVITAMINS [Concomitant]
     Active Substance: VITAMINS
  7. METHYL B12 [Concomitant]
     Active Substance: METHYLCOBALAMIN
  8. BEFOTIAMINE [Concomitant]
  9. CREON [Concomitant]
     Active Substance: PANCRELIPASE AMYLASE\PANCRELIPASE LIPASE\PANCRELIPASE PROTEASE
  10. VITAMIN B COMPLEX [Concomitant]
     Active Substance: CYANOCOBALAMIN\DEXPANTHENOL\NIACINAMIDE\PYRIDOXINE HYDROCHLORIDE\RIBOFLAVIN 5^-PHOSPHATE SODIUM\THIAMINE HYDROCHLORIDE\VITAMIN B COMPLEX
  11. L?LEUCINE [Concomitant]
  12. WHEY PROTEIN [Concomitant]
     Active Substance: WHEY
  13. SAW PALMETTO [Concomitant]
     Active Substance: HERBALS\SAW PALMETTO
  14. L?CITRULLINE [Concomitant]
     Active Substance: CITRULLINE
  15. RUTIN [Concomitant]
     Active Substance: RUTIN
  16. RESVERATROL [Concomitant]
     Active Substance: DIETARY SUPPLEMENT\RESVERATROL
  17. COENZYME Q10 [Concomitant]
     Active Substance: DIETARY SUPPLEMENT\UBIDECARENONE
  18. MACA [Concomitant]
  19. BETA SITOSTEROL [Concomitant]
  20. COLLAGENS TYPE 1,2,3 [Concomitant]
  21. CATS CLAW /01453401/ [Concomitant]
     Active Substance: HERBALS
  22. BIOTIN [Concomitant]
     Active Substance: BIOTIN
  23. HAYLURONIC ACID [Concomitant]

REACTIONS (4)
  - Loss of consciousness [None]
  - Fall [None]
  - Head injury [None]
  - Seizure [None]

NARRATIVE: CASE EVENT DATE: 20201001
